FAERS Safety Report 4464543-7 (Version None)
Quarter: 2004Q3

REPORT INFORMATION
  Report Type: 
  Country: None (occurrence: None)
  Receive Date: 20040929
  Receipt Date: 20040920
  Transmission Date: 20050211
  Serious: Yes (Other)
  Sender: FDA-Public Use
  Company Number: 2004234715US

PATIENT
  Sex: Female
  Weight: 74.8 kg

DRUGS (8)
  1. CELEBREX [Suspect]
     Indication: BACK PAIN
     Dosage: 200 MG, QD, ORAL
     Route: 048
     Dates: start: 19990101, end: 20040101
  2. NEURONTIN [Suspect]
     Indication: BACK PAIN
     Dosage: 600 MG, TID, ORAL;  600 MG, BID,
     Route: 048
     Dates: start: 19990101
  3. WELLBUTRIN [Concomitant]
  4. SEROQUEL [Concomitant]
  5. ELAVIL [Concomitant]
  6. SYNTHROID [Concomitant]
  7. TRICOR [Concomitant]
  8. PRAVACHOL [Concomitant]

REACTIONS (12)
  - AMNESIA [None]
  - BONE GRAFT [None]
  - COGNITIVE DETERIORATION [None]
  - CONFUSIONAL STATE [None]
  - DENTAL CARIES [None]
  - FACIAL BONES FRACTURE [None]
  - GINGIVAL HYPOPLASIA [None]
  - IMPAIRED HEALING [None]
  - LOSS OF CONSCIOUSNESS [None]
  - ORAL INFECTION [None]
  - TOOTH FRACTURE [None]
  - VISION BLURRED [None]
